FAERS Safety Report 7535763-X (Version None)
Quarter: 2011Q2

REPORT INFORMATION
  Report Type: 
  Country: None (occurrence: None)
  Receive Date: 20110609
  Receipt Date: 20110217
  Transmission Date: 20111010
  Serious: No
  Sender: FDA-Public Use
  Company Number: US-KINGPHARMUSA00001-K201100187

PATIENT
  Age: 65 Year
  Sex: Female
  Weight: 78.458 kg

DRUGS (4)
  1. FLOMAX [Suspect]
  2. EMBEDA [Suspect]
     Dosage: 30 MG, TID
     Route: 048
  3. EMBEDA [Suspect]
     Indication: PAIN
     Dosage: 20 MG, UNK
     Route: 048
     Dates: start: 20101101
  4. EMBEDA [Suspect]
     Dosage: 50 MG, EVERY 12 HOURS
     Route: 048
     Dates: start: 20110217

REACTIONS (5)
  - ABDOMINAL DISCOMFORT [None]
  - HEADACHE [None]
  - BACK PAIN [None]
  - ABNORMAL FAECES [None]
  - DRUG INEFFECTIVE [None]
